FAERS Safety Report 20900490 (Version 1)
Quarter: 2022Q2

REPORT INFORMATION
  Report Type: Spontaneous
  Country: CA (occurrence: CA)
  Receive Date: 20220601
  Receipt Date: 20220601
  Transmission Date: 20220720
  Serious: Yes (Other)
  Sender: FDA-Public Use
  Company Number: CA-BAYER-2022A073821

PATIENT
  Age: 47 Year
  Sex: Female

DRUGS (38)
  1. CIPROFLOXACIN [Suspect]
     Active Substance: CIPROFLOXACIN
     Dosage: UNK
     Route: 048
  2. CLINDAMYCIN [Suspect]
     Active Substance: CLINDAMYCIN
  3. LEVOFLOXACIN [Suspect]
     Active Substance: LEVOFLOXACIN
  4. ARAVA [Suspect]
     Active Substance: LEFLUNOMIDE
  5. METOPROLOL TARTRATE [Suspect]
     Active Substance: METOPROLOL TARTRATE
  6. METHOTREXATE [Suspect]
     Active Substance: METHOTREXATE
  7. HYDROCHLOROTHIAZIDE [Suspect]
     Active Substance: HYDROCHLOROTHIAZIDE
  8. CEPHALEXIN [Suspect]
     Active Substance: CEPHALEXIN
  9. HYDROXYCHLOROQUINE SULFATE [Suspect]
     Active Substance: HYDROXYCHLOROQUINE SULFATE
  10. ENALAPRIL [Suspect]
     Active Substance: ENALAPRIL
  11. PANTOPRAZOLE MAGNESIUM [Suspect]
     Active Substance: PANTOPRAZOLE MAGNESIUM
  12. PREDNISONE [Concomitant]
     Active Substance: PREDNISONE
  13. SACCHARATED IRON OXIDE [Concomitant]
     Active Substance: IRON SUCROSE
  14. HYDROXYCHLOROQUINE [Concomitant]
     Active Substance: HYDROXYCHLOROQUINE
  15. RANITIDINE [Concomitant]
     Active Substance: RANITIDINE
  16. ATENOLOL [Concomitant]
     Active Substance: ATENOLOL
  17. PATIROMER [Concomitant]
     Active Substance: PATIROMER
  18. LEUCOVORIN CALCIUM [Concomitant]
     Active Substance: LEUCOVORIN CALCIUM
  19. COLCHICINE [Concomitant]
     Active Substance: COLCHICINE
  20. IRON SUCROSE [Concomitant]
     Active Substance: IRON SUCROSE
  21. ORENCIA [Suspect]
     Active Substance: ABATACEPT
  22. CLARITHROMYCIN [Suspect]
     Active Substance: CLARITHROMYCIN
  23. CODEINE SULFATE [Suspect]
     Active Substance: CODEINE SULFATE
  24. GLICLAZIDE [Suspect]
     Active Substance: GLICLAZIDE
  25. ENBREL [Suspect]
     Active Substance: ETANERCEPT
  26. PERINDOPRIL ERBUMINE [Concomitant]
     Active Substance: PERINDOPRIL ERBUMINE
  27. RABEPRAZOLE SODIUM [Suspect]
     Active Substance: RABEPRAZOLE SODIUM
  28. ESOMEPRAZOLE [Concomitant]
     Active Substance: ESOMEPRAZOLE
  29. PENICILLIN G 2-AMINO-4-METHYLPYRIMIDINE [Suspect]
     Active Substance: PENICILLIN G 2-AMINO-4-METHYLPYRIMIDINE
  30. XELJANZ [Suspect]
     Active Substance: TOFACITINIB CITRATE
  31. GOLD [Concomitant]
     Active Substance: GOLD
  32. MOXIFLOXACIN HYDROCHLORIDE [Suspect]
     Active Substance: MOXIFLOXACIN HYDROCHLORIDE
  33. HYDROXYCHLOROQUINE [Suspect]
     Active Substance: HYDROXYCHLOROQUINE
  34. CELECOXIB [Suspect]
     Active Substance: CELECOXIB
  35. ALENDRONATE SODIUM [Suspect]
     Active Substance: ALENDRONATE SODIUM
  36. ISONIAZID [Suspect]
     Active Substance: ISONIAZID
  37. LOSARTAN [Suspect]
     Active Substance: LOSARTAN
  38. PANTOPRAZOLE MAGNESIUM [Suspect]
     Active Substance: PANTOPRAZOLE MAGNESIUM

REACTIONS (23)
  - Drug ineffective [None]
  - Product use issue [Unknown]
  - Off label use [Unknown]
  - Abdominal discomfort [Unknown]
  - Cardiac failure congestive [Unknown]
  - Hepatic steatosis [Unknown]
  - Arthralgia [Unknown]
  - Cough [Unknown]
  - Drug hypersensitivity [Unknown]
  - Dyspnoea [Unknown]
  - Gastric disorder [Unknown]
  - Hypertension [Unknown]
  - Loss of employment [Unknown]
  - Malaise [Unknown]
  - Liver disorder [Unknown]
  - Drug intolerance [Unknown]
  - Abdominal pain upper [Unknown]
  - Nausea [Unknown]
  - Diarrhoea [Unknown]
  - Rash [Unknown]
  - Headache [Unknown]
  - Therapeutic product effect decreased [Unknown]
  - Contraindicated product administered [Unknown]
